FAERS Safety Report 9187187 (Version 4)
Quarter: 2018Q2

REPORT INFORMATION
  Report Type: Report from Study
  Country: AU (occurrence: AU)
  Receive Date: 20130322
  Receipt Date: 20180521
  Transmission Date: 20180711
  Serious: Yes (Other)
  Sender: FDA-Public Use
  Company Number: AU-ROCHE-1204018

PATIENT
  Age: 29 Year
  Sex: Female

DRUGS (11)
  1. TYKERB [Suspect]
     Active Substance: LAPATINIB DITOSYLATE
     Indication: PRODUCT USED FOR UNKNOWN INDICATION
     Route: 065
  2. TAMOXIFEN [Concomitant]
     Active Substance: TAMOXIFEN
  3. XELODA [Suspect]
     Active Substance: CAPECITABINE
     Indication: HER-2 POSITIVE BREAST CANCER
     Dosage: THERAPY START DATE- MAR/2012
     Route: 065
  4. TAXOL [Concomitant]
     Active Substance: PACLITAXEL
  5. ZOMETA [Concomitant]
     Active Substance: ZOLEDRONIC ACID
  6. LAPATINIB [Concomitant]
     Active Substance: LAPATINIB
     Route: 065
     Dates: start: 201203
  7. KADCYLA [Suspect]
     Active Substance: ADO-TRASTUZUMAB EMTANSINE
     Indication: BREAST CANCER
     Dosage: ONGOING FOR 18 MONTHS
     Route: 042
  8. ABRAXANE [Concomitant]
     Active Substance: PACLITAXEL
  9. HERCEPTIN [Suspect]
     Active Substance: TRASTUZUMAB
     Indication: HER-2 POSITIVE BREAST CANCER
     Route: 065
     Dates: start: 2008
  10. LETROZOLE. [Concomitant]
     Active Substance: LETROZOLE
  11. TAXOTERE [Concomitant]
     Active Substance: DOCETAXEL

REACTIONS (20)
  - Disease progression [Unknown]
  - Metastases to chest wall [Unknown]
  - Breast cancer [Unknown]
  - Dry eye [Unknown]
  - Dry mouth [Unknown]
  - Eye ulcer [Unknown]
  - Metastasis [Unknown]
  - Metastases to spine [Unknown]
  - Metastases to liver [Unknown]
  - Loss of consciousness [Unknown]
  - Metastases to central nervous system [Unknown]
  - Nasopharyngitis [Unknown]
  - Dry skin [Unknown]
  - Metastases to skin [Unknown]
  - Fatigue [Unknown]
  - Pain in extremity [Unknown]
  - Metastases to bone [Unknown]
  - Alopecia [Unknown]
  - Nasal dryness [Unknown]
  - Memory impairment [Unknown]

NARRATIVE: CASE EVENT DATE: 200906
